FAERS Safety Report 7782730-7 (Version None)
Quarter: 2011Q3

REPORT INFORMATION
  Report Type: 
  Country: None (occurrence: None)
  Receive Date: 20110927
  Receipt Date: 20110927
  Transmission Date: 20111222
  Serious: Yes (Hospitalization)
  Sender: FDA-Public Use
  Company Number: None

PATIENT
  Sex: Female
  Weight: 73.9 kg

DRUGS (2)
  1. ETOPOSIDE [Suspect]
     Dosage: 540 MG
     Dates: end: 20110909
  2. CARBOPLATIN [Suspect]
     Dosage: 731 MG
     Dates: end: 20110907

REACTIONS (2)
  - NON-CARDIAC CHEST PAIN [None]
  - HAEMOGLOBIN DECREASED [None]
